FAERS Safety Report 8244789-2 (Version None)
Quarter: 2012Q1

REPORT INFORMATION
  Report Type: 
  Country: None (occurrence: None)
  Receive Date: 20120329
  Receipt Date: 20110411
  Transmission Date: 20120608
  Serious: No
  Sender: FDA-Public Use
  Company Number: US-MYLANLABS-2011S1007674

PATIENT
  Age: 60 Year
  Sex: Female
  Weight: 50.35 kg

DRUGS (1)
  1. FENTANYL-100 [Suspect]
     Indication: COMPLEX REGIONAL PAIN SYNDROME
     Dosage: Q. 36 HOURS.
     Route: 062
     Dates: start: 20110401

REACTIONS (2)
  - DYSGEUSIA [None]
  - THROAT IRRITATION [None]
